FAERS Safety Report 9216382 (Version 2)
Quarter: 2013Q2

REPORT INFORMATION
  Report Type: Spontaneous
  Country: GB (occurrence: None)
  Receive Date: 20130404
  Receipt Date: 20130410
  Transmission Date: 20140414
  Serious: Yes (Other)
  Sender: FDA-Public Use
  Company Number: AUR-APL-2013-02728

PATIENT
  Age: 69 Year
  Sex: Male
  Weight: 70 kg

DRUGS (10)
  1. SIMVASTATIN [Suspect]
     Indication: PRODUCT USED FOR UNKNOWN INDICATION
     Dates: start: 20130306
  2. BENDROFLUMETHIAZIDE (BENDROFLUMETHIAZIDE) [Concomitant]
  3. CLOBETASOL PROPIONATE (CLOBETASOL PROPIONATE) [Concomitant]
  4. DULOXETINE [Concomitant]
  5. GLICLAZIDE (GLICLAZIDE) [Concomitant]
  6. HYPROMELLOSE (HYPROMELLOSE) [Concomitant]
  7. LOSARTAN (LOSARTAN) [Concomitant]
  8. OMEPRAZOLE (OMEPRAZOLE) [Concomitant]
  9. SYMBICORT (BUDESONIDE W/ FORMOTEROL FUMARATE) [Concomitant]
  10. TILDIEM (DILTIAZEM HYDROCHLORIDE) [Concomitant]

REACTIONS (4)
  - Rash [None]
  - Urticaria [None]
  - Swelling face [None]
  - Rash [None]
